FAERS Safety Report 6418988-6 (Version None)
Quarter: 2009Q4

REPORT INFORMATION
  Report Type: 
  Country: None (occurrence: None)
  Receive Date: 20091029
  Receipt Date: 20091020
  Transmission Date: 20100525
  Serious: Yes (Hospitalization)
  Sender: FDA-Public Use
  Company Number: JP-JNJFOC-20090902044

PATIENT
  Sex: Female
  Weight: 53 kg

DRUGS (9)
  1. RISPERDAL [Suspect]
     Indication: HYPERACUSIS
     Route: 048
     Dates: start: 20070901, end: 20080801
  2. PEROSPIRONE HYDROCHLORIDE [Suspect]
     Indication: DRUG USE FOR UNKNOWN INDICATION
     Route: 048
  3. OLANZAPINE [Suspect]
     Indication: DRUG USE FOR UNKNOWN INDICATION
     Route: 048
  4. UNSPECIFIED TRANQUILIZERS [Suspect]
     Indication: DRUG USE FOR UNKNOWN INDICATION
     Route: 065
  5. VALPROATE SODIUM [Concomitant]
     Route: 048
  6. BROMAZEPAM [Concomitant]
     Route: 048
  7. FLUNITRAZEPAM [Concomitant]
     Route: 048
  8. FLUVOXAMINE MALEATE [Concomitant]
     Route: 048
  9. DIAZEPAM [Concomitant]
     Dosage: AS NEEDED
     Route: 065

REACTIONS (3)
  - COGNITIVE DISORDER [None]
  - MEIGE'S SYNDROME [None]
  - OFF LABEL USE [None]
